FAERS Safety Report 8590836-8 (Version None)
Quarter: 2012Q3

REPORT INFORMATION
  Report Type: 
  Country: None (occurrence: None)
  Receive Date: 20120813
  Receipt Date: 20120808
  Transmission Date: 20120928
  Serious: Yes (Other)
  Sender: FDA-Public Use
  Company Number: BR-ROCHE-1099530

PATIENT
  Age: 62 Year
  Sex: Female

DRUGS (1)
  1. MABTHERA [Suspect]
     Indication: RHEUMATOID ARTHRITIS
     Route: 042
     Dates: start: 20100301, end: 20120711

REACTIONS (4)
  - ANAPHYLACTIC SHOCK [None]
  - MUSCULOSKELETAL STIFFNESS [None]
  - TACHYCARDIA [None]
  - SELF INJURIOUS BEHAVIOUR [None]
